FAERS Safety Report 18014691 (Version 1)
Quarter: 2020Q3

REPORT INFORMATION
  Report Type: Spontaneous
  Country: CN (occurrence: CN)
  Receive Date: 20200713
  Receipt Date: 20200713
  Transmission Date: 20201103
  Serious: Yes (Other)
  Sender: FDA-Public Use
  Company Number: ALC2020CN005375

PATIENT
  Age: 49 Year
  Sex: Male
  Weight: 65 kg

DRUGS (1)
  1. FLUORESCITE [Suspect]
     Active Substance: FLUORESCEIN SODIUM
     Indication: FUNDOSCOPY
     Dosage: 4.200 ML, QD
     Route: 042
     Dates: start: 20200701, end: 20200701

REACTIONS (1)
  - Rash [Recovering/Resolving]

NARRATIVE: CASE EVENT DATE: 20200701
